FAERS Safety Report 9196265 (Version 2)
Quarter: 2013Q2

REPORT INFORMATION
  Report Type: Spontaneous
  Country: AR (occurrence: AR)
  Receive Date: 20130328
  Receipt Date: 20130422
  Transmission Date: 20140414
  Serious: Yes (Death, Other)
  Sender: FDA-Public Use
  Company Number: AR-PFIZER INC-2013095921

PATIENT
  Sex: Female

DRUGS (1)
  1. LINEZOLID [Suspect]
     Dosage: UNK

REACTIONS (5)
  - Death [Fatal]
  - Papilloedema [Unknown]
  - Intracranial pressure increased [Unknown]
  - Depressed level of consciousness [Unknown]
  - Disorientation [Unknown]
